FAERS Safety Report 7947178-0 (Version None)
Quarter: 2011Q4

REPORT INFORMATION
  Report Type: 
  Country: None (occurrence: None)
  Receive Date: 20111129
  Receipt Date: 20111103
  Transmission Date: 20120403
  Serious: Yes (Other)
  Sender: FDA-Public Use
  Company Number: AT-ELI_LILLY_AND_COMPANY-AT201111006367

PATIENT
  Age: 76 Year
  Sex: Female
  Weight: 77 kg

DRUGS (10)
  1. TERIPARATIDE [Suspect]
     Dosage: 20 UG, UNKNOWN
     Route: 065
  2. ERYCYTOL [Concomitant]
     Dosage: UNK, UNKNOWN
     Route: 065
  3. LORADUR [Concomitant]
     Dosage: UNK, UNKNOWN
     Route: 065
  4. CALCIUM CARBONATE [Concomitant]
     Dosage: UNK, UNKNOWN
     Route: 065
  5. ASPIRIN [Concomitant]
     Dosage: UNK, UNKNOWN
     Route: 065
  6. LEGALON [Concomitant]
     Dosage: UNK, UNKNOWN
     Route: 065
  7. OLEOVIT-D3 [Concomitant]
     Dosage: UNK, UNKNOWN
     Route: 065
  8. GASTROLOC [Concomitant]
     Dosage: UNK, UNKNOWN
     Route: 065
  9. PARKEMED [Concomitant]
     Dosage: UNK, UNKNOWN
     Route: 065
  10. LEVOTHYROXINE SODIUM [Concomitant]
     Dosage: UNK, UNKNOWN
     Route: 065

REACTIONS (1)
  - CRYPTOGENIC CIRRHOSIS [None]
